FAERS Safety Report 5586126-8 (Version None)
Quarter: 2007Q4

REPORT INFORMATION
  Report Type: 
  Country: None (occurrence: None)
  Receive Date: 20071205
  Receipt Date: 20070426
  Transmission Date: 20080405
  Serious: Yes (Other)
  Sender: FDA-Public Use
  Company Number: HQWYE885327APR07

PATIENT
  Age: 50 Year
  Sex: Female

DRUGS (2)
  1. EFFEXOR XR [Suspect]
     Indication: DEPRESSION
     Dosage: 300 MG 1 X PER 1 DAY, ORAL
     Route: 048
     Dates: start: 20020101, end: 20070201
  2. EFFEXOR XR [Suspect]
     Indication: DEPRESSION
     Dosage: 300 MG 1 X PER 1 DAY, ORAL
     Route: 048
     Dates: start: 20070101

REACTIONS (5)
  - ABNORMAL DREAMS [None]
  - DEPRESSION [None]
  - DRUG WITHDRAWAL SYNDROME [None]
  - HEADACHE [None]
  - UNEVALUABLE EVENT [None]
